FAERS Safety Report 6693671-0 (Version None)
Quarter: 2010Q2

REPORT INFORMATION
  Report Type: 
  Country: None (occurrence: None)
  Receive Date: 20100421
  Receipt Date: 20100409
  Transmission Date: 20101027
  Serious: Yes (Other)
  Sender: FDA-Public Use
  Company Number: 237598K09USA

PATIENT
  Age: 56 Year
  Sex: Female
  Weight: 125 kg

DRUGS (15)
  1. REBIF [Suspect]
     Indication: MULTIPLE SCLEROSIS
     Dosage: 44 MCG, 3 IN 1 WK, SUBCUTANEOUS
     Route: 058
     Dates: start: 20080620
  2. NEXIIUM (ESOMEPRAZOLE MAGNESIUM) [Concomitant]
  3. WELLBUTRIN SR [Concomitant]
  4. VALTREX [Concomitant]
  5. L-LYSINE (LYSINE) [Concomitant]
  6. ZOVIRAX [Concomitant]
  7. DARVOCET-N (PROPACET) [Concomitant]
  8. ADVIL LIQUI-GELS [Concomitant]
  9. ADVAIR DISKUS (SERETIDE) [Concomitant]
  10. ALBUTEROL [Concomitant]
  11. ZETIA [Concomitant]
  12. ALLEGRA [Concomitant]
  13. NEURONTIN [Concomitant]
  14. FLEXERIL [Concomitant]
  15. PROVIGIL [Concomitant]

REACTIONS (6)
  - BASAL CELL CARCINOMA [None]
  - BREAST CANCER STAGE II [None]
  - IMPAIRED HEALING [None]
  - MASTITIS [None]
  - RADIATION SKIN INJURY [None]
  - SCAR [None]
